FAERS Safety Report 6930086-1 (Version None)
Quarter: 2010Q3

REPORT INFORMATION
  Report Type: 
  Country: None (occurrence: None)
  Receive Date: 20100818
  Receipt Date: 20100812
  Transmission Date: 20110219
  Serious: Yes (Disabling)
  Sender: FDA-Public Use
  Company Number: US-BAYER-201030508NA

PATIENT
  Age: 40 Year
  Sex: Female

DRUGS (1)
  1. CIPRO [Suspect]
     Indication: URINARY TRACT INFECTION
     Dosage: TOTAL DAILY DOSE: 1000 MG  UNIT DOSE: 500 MG
     Route: 048
     Dates: start: 20100729, end: 20100808

REACTIONS (4)
  - ABASIA [None]
  - ARTHROPATHY [None]
  - LIGAMENT DISORDER [None]
  - MOBILITY DECREASED [None]
